FAERS Safety Report 25578932 (Version 2)
Quarter: 2025Q3

REPORT INFORMATION
  Report Type: Spontaneous
  Country: US (occurrence: US)
  Receive Date: 20250718
  Receipt Date: 20250721
  Transmission Date: 20251021
  Serious: Yes (Other)
  Sender: PFIZER
  Company Number: US-PFIZER INC-202500145051

PATIENT
  Age: 64 Year
  Sex: Female

DRUGS (11)
  1. IBRANCE [Suspect]
     Active Substance: PALBOCICLIB
     Route: 048
     Dates: start: 20250213
  2. ADRIAMYCIN [Suspect]
     Active Substance: DOXORUBICIN HYDROCHLORIDE
  3. ANASTROZOLE [Suspect]
     Active Substance: ANASTROZOLE
  4. ABEMACICLIB [Suspect]
     Active Substance: ABEMACICLIB
     Dosage: 100 MG TWICE DAILY
  5. LETROZOLE [Suspect]
     Active Substance: LETROZOLE
  6. TAXOL [Suspect]
     Active Substance: PACLITAXEL
  7. TAXOL [Suspect]
     Active Substance: PACLITAXEL
  8. ALLOPURINOL [Concomitant]
     Active Substance: ALLOPURINOL
  9. FULVESTRANT [Concomitant]
     Active Substance: FULVESTRANT
  10. NAPROXEN [Concomitant]
     Active Substance: NAPROXEN
  11. ZOLEDRONIC [Concomitant]
     Active Substance: ZOLEDRONIC ACID

REACTIONS (6)
  - Neuropathy peripheral [Unknown]
  - Malignant neoplasm progression [Unknown]
  - Mucosal inflammation [Unknown]
  - Weight decreased [Unknown]
  - Osteoarthritis [Unknown]
  - Nausea [Unknown]
